FAERS Safety Report 22659323 (Version 1)
Quarter: 2023Q2

REPORT INFORMATION
  Report Type: Spontaneous
  Country: CA (occurrence: CA)
  Receive Date: 20230630
  Receipt Date: 20230630
  Transmission Date: 20230721
  Serious: Yes (Hospitalization)
  Sender: FDA-Public Use
  Company Number: CA-Vifor (International) Inc.-VIT-2023-04802

PATIENT
  Sex: Male

DRUGS (1)
  1. VELPHORO [Suspect]
     Active Substance: SUCROFERRIC OXYHYDROXIDE
     Indication: Congenital cystic kidney disease
     Dosage: 2 TABLETS WITH LUNCH AND 3 TABLETS WITH DINNER
     Route: 048
     Dates: start: 20230327, end: 2023

REACTIONS (3)
  - Hospitalisation [Unknown]
  - Discomfort [Unknown]
  - Therapy interrupted [Unknown]

NARRATIVE: CASE EVENT DATE: 20230101
